FAERS Safety Report 6293694-X (Version None)
Quarter: 2009Q3

REPORT INFORMATION
  Report Type: 
  Country: None (occurrence: None)
  Receive Date: 20090730
  Receipt Date: 20090717
  Transmission Date: 20100115
  Serious: No
  Sender: FDA-Public Use
  Company Number: 8048515

PATIENT
  Sex: Female
  Weight: 28.2 kg

DRUGS (2)
  1. KEPPRA [Suspect]
     Indication: CONVULSION
     Dosage: 500 MG 2/D PO
     Route: 048
     Dates: start: 20090101
  2. KEPPRA XR [Suspect]

REACTIONS (2)
  - CONVULSION [None]
  - MALAISE [None]
